FAERS Safety Report 18559686 (Version 1)
Quarter: 2020Q4

REPORT INFORMATION
  Report Type: Spontaneous
  Country: US (occurrence: US)
  Receive Date: 20201128
  Receipt Date: 20201128
  Transmission Date: 20210114
  Serious: Yes (Hospitalization)
  Sender: FDA-Public Use
  Company Number: None

PATIENT
  Age: 63 Year
  Sex: Female
  Weight: 54.7 kg

DRUGS (1)
  1. BAMLANIVIMAB 700MG [Suspect]
     Active Substance: BAMLANIVIMAB
     Indication: COVID-19
     Route: 042
     Dates: start: 20201127, end: 20201127

REACTIONS (5)
  - Abnormal behaviour [None]
  - Nausea [None]
  - Hypoxia [None]
  - Encephalopathy [None]
  - Vomiting [None]

NARRATIVE: CASE EVENT DATE: 20201127
